FAERS Safety Report 8977973 (Version 1)
Quarter: 2012Q4

REPORT INFORMATION
  Report Type: 
  Country: US (occurrence: US)
  Receive Date: 20121219
  Receipt Date: 20121219
  Transmission Date: 20130627
  Serious: Yes (Hospitalization)
  Sender: FDA-Public Use
  Company Number: US-B.I. PHARMACEUTICALS,INC./RIDGEFIELD-2012-BI-03383BP

PATIENT
  Age: 49 Year
  Sex: Male
  Weight: 82 kg

DRUGS (4)
  1. PRADAXA [Suspect]
     Indication: THROMBOSIS
     Dosage: 300 mg
     Route: 048
     Dates: start: 20121203, end: 20121207
  2. PRADAXA [Suspect]
     Dosage: 300 mg
     Route: 048
     Dates: start: 20121212
  3. ASPIRIN [Concomitant]
     Indication: STENT PLACEMENT
     Dosage: 81 mg
     Route: 048
     Dates: start: 2011
  4. BENAZEPRIL [Concomitant]
     Indication: HYPERTENSION
     Dosage: 5 mg
     Route: 048
     Dates: start: 2010

REACTIONS (3)
  - Rectal haemorrhage [Not Recovered/Not Resolved]
  - Rectal polyp [Recovered/Resolved]
  - Gastric ulcer [Not Recovered/Not Resolved]
